FAERS Safety Report 9492067 (Version 1)
Quarter: 2013Q3

REPORT INFORMATION
  Report Type: Report from Study
  Country: LB (occurrence: LB)
  Receive Date: 20130830
  Receipt Date: 20130830
  Transmission Date: 20140515
  Serious: Yes (Hospitalization)
  Sender: FDA-Public Use
  Company Number: LB-SANOFI-AVENTIS-2013SA084996

PATIENT
  Age: 56 Year
  Sex: Female

DRUGS (6)
  1. LANTUS SOLOSTAR [Suspect]
     Indication: DIABETES MELLITUS
     Dosage: DOSE:12 UNIT(S)
     Route: 058
  2. AMARYL [Concomitant]
     Indication: DIABETES MELLITUS
     Route: 048
  3. GLUCOPHAGE [Concomitant]
     Indication: DIABETES MELLITUS
     Route: 048
  4. COVERSYL [Concomitant]
     Route: 048
  5. MARVIL [Concomitant]
     Route: 048
  6. SOLOSTAR [Concomitant]

REACTIONS (2)
  - Cardiac disorder [Unknown]
  - Dyspepsia [Unknown]
